FAERS Safety Report 4607282-1 (Version None)
Quarter: 2005Q1

REPORT INFORMATION
  Report Type: 
  Country: None (occurrence: None)
  Receive Date: 20050311
  Receipt Date: 20050311
  Transmission Date: 20050727
  Serious: Yes (Life-Threatening, Disabling, Other)
  Sender: FDA-Public Use
  Company Number: None

PATIENT
  Age: 87 Year
  Sex: Male
  Weight: 74.8435 kg

DRUGS (2)
  1. BEXTRA [Suspect]
     Dosage: 1 PER DAY, ORALLY
     Route: 048
     Dates: start: 20040629
  2. BEXTRA [Suspect]
     Dosage: 1 PER DAY, ORALLY
     Route: 048
     Dates: start: 20050301

REACTIONS (7)
  - CHILLS [None]
  - FEELING ABNORMAL [None]
  - FEELING HOT [None]
  - PRURITUS [None]
  - RASH GENERALISED [None]
  - SKIN EXFOLIATION [None]
  - WEIGHT DECREASED [None]
